FAERS Safety Report 5046527-3 (Version None)
Quarter: 2006Q3

REPORT INFORMATION
  Report Type: 
  Country: None (occurrence: None)
  Receive Date: 20060710
  Receipt Date: 20060530
  Transmission Date: 20061208
  Serious: Yes (Other)
  Sender: FDA-Public Use
  Company Number: US-GILEAD-2006-0009659

PATIENT
  Age: 25 Year
  Sex: Female
  Weight: 109.96 kg

DRUGS (3)
  1. VIREAD [Suspect]
     Indication: HIV INFECTION
     Route: 048
     Dates: start: 20051101
  2. VIDEX [Concomitant]
     Indication: HIV INFECTION
     Route: 048
     Dates: start: 20051101
  3. VIRACEPT [Concomitant]
     Indication: HIV INFECTION
     Route: 048
     Dates: start: 20051101

REACTIONS (3)
  - CONGENITAL TERATOMA [None]
  - DRUG EXPOSURE DURING PREGNANCY [None]
  - PREGNANCY [None]
